FAERS Safety Report 5488803-6 (Version None)
Quarter: 2007Q4

REPORT INFORMATION
  Report Type: 
  Country: None (occurrence: None)
  Receive Date: 20071016
  Receipt Date: 20071008
  Transmission Date: 20080405
  Serious: Yes (Death)
  Sender: FDA-Public Use
  Company Number: 2007SP019433

PATIENT
  Age: 51 Year
  Sex: Male

DRUGS (3)
  1. TEMOZOLOMIDE [Suspect]
     Indication: DRUG USE FOR UNKNOWN INDICATION
     Dosage: 75 MG/M2; 150 MG/M2;
     Dates: start: 20070625, end: 20070803
  2. TEMOZOLOMIDE [Suspect]
     Indication: DRUG USE FOR UNKNOWN INDICATION
     Dosage: 75 MG/M2; 150 MG/M2;
     Dates: start: 20070914
  3. DEXAMETHASONE (CON.) [Concomitant]

REACTIONS (4)
  - CEREBRAL HAEMORRHAGE [None]
  - PNEUMONIA [None]
  - PULMONARY EMBOLISM [None]
  - SUDDEN DEATH [None]
